FAERS Safety Report 6885527-5 (Version None)
Quarter: 2010Q3

REPORT INFORMATION
  Report Type: 
  Country: None (occurrence: None)
  Receive Date: 20100729
  Receipt Date: 20090130
  Transmission Date: 20110219
  Serious: Yes (Death, Other)
  Sender: FDA-Public Use
  Company Number: US-PFIZER INC-2008093705

PATIENT
  Sex: Male
  Weight: 90.909 kg

DRUGS (2)
  1. CELEBREX [Suspect]
     Indication: PAIN
     Dates: start: 20081020
  2. LISINOPRIL [Concomitant]

REACTIONS (1)
  - MYOCARDIAL INFARCTION [None]
